FAERS Safety Report 5010846-7 (Version None)
Quarter: 2006Q2

REPORT INFORMATION
  Report Type: 
  Country: None (occurrence: None)
  Receive Date: 20060525
  Receipt Date: 20060518
  Transmission Date: 20061013
  Serious: Yes (Other)
  Sender: FDA-Public Use
  Company Number: US-GLAXOSMITHKLINE-A0606832A

PATIENT
  Age: 30 Year
  Sex: Female

DRUGS (5)
  1. LEXIVA [Suspect]
     Indication: HIV INFECTION
     Dosage: 700MG PER DAY
     Route: 048
     Dates: start: 20040701, end: 20060201
  2. COMBIVIR [Suspect]
     Indication: HIV INFECTION
     Dosage: 2TAB PER DAY
     Route: 048
     Dates: start: 20060412
  3. TRUVADA [Concomitant]
     Indication: HIV INFECTION
     Dosage: 1TAB PER DAY
     Route: 048
     Dates: start: 20040701, end: 20060201
  4. RITONAVIR [Concomitant]
     Indication: HIV INFECTION
     Dosage: 100MG PER DAY
     Route: 048
     Dates: start: 20040701, end: 20060201
  5. KALETRA [Concomitant]
     Indication: HIV INFECTION
     Dosage: 6CAP PER DAY
     Route: 048
     Dates: start: 20060412

REACTIONS (2)
  - ABORTION SPONTANEOUS [None]
  - DRUG EXPOSURE DURING PREGNANCY [None]
